FAERS Safety Report 7175005-0 (Version None)
Quarter: 2010Q4

REPORT INFORMATION
  Report Type: 
  Country: None (occurrence: None)
  Receive Date: 20101220
  Receipt Date: 20100409
  Transmission Date: 20110411
  Serious: No
  Sender: FDA-Public Use
  Company Number: US-AMGEN-TCS404951

PATIENT

DRUGS (4)
  1. ENBREL [Suspect]
     Indication: RHEUMATOID ARTHRITIS
     Dosage: 50 MG, QWK
     Route: 058
     Dates: start: 20090917
  2. ENBREL [Suspect]
     Indication: PSORIATIC ARTHROPATHY
  3. METHOTREXATE [Concomitant]
     Dosage: 20 MG, QWK
  4. HYDROXYCHLOROQUINE [Concomitant]
     Dosage: 400 MG, QD

REACTIONS (3)
  - HAND DEFORMITY [None]
  - INJECTION SITE HAEMATOMA [None]
  - SYNOVIAL CYST [None]
